FAERS Safety Report 4558808-8 (Version None)
Quarter: 2005Q1

REPORT INFORMATION
  Report Type: 
  Country: None (occurrence: None)
  Receive Date: 20050121
  Receipt Date: 20050114
  Transmission Date: 20050727
  Serious: Yes (Life-Threatening)
  Sender: FDA-Public Use
  Company Number: JP-GLAXOSMITHKLINE-B0364425A

PATIENT
  Age: 51 Year
  Sex: Male
  Weight: 51 kg

DRUGS (30)
  1. ALKERAN [Suspect]
     Indication: STEM CELL TRANSPLANT
     Route: 042
     Dates: start: 20040927, end: 20040927
  2. CYLOCIDE [Suspect]
     Indication: STEM CELL TRANSPLANT
     Dates: start: 20040923, end: 20040926
  3. ETOPOSIDE [Suspect]
     Indication: STEM CELL TRANSPLANT
     Route: 042
     Dates: start: 20040923, end: 20040926
  4. CYMERIN [Suspect]
     Indication: STEM CELL TRANSPLANT
     Route: 042
     Dates: start: 20040922, end: 20040922
  5. MIRACLID [Suspect]
     Route: 042
     Dates: start: 20041002, end: 20041002
  6. GRAN [Concomitant]
     Dates: start: 20041001, end: 20041009
  7. ALLOPURINOL [Concomitant]
     Route: 048
     Dates: start: 20040811, end: 20041002
  8. ITRIZOLE [Concomitant]
     Route: 048
     Dates: start: 20040811, end: 20041002
  9. GASTER D [Concomitant]
     Route: 048
     Dates: start: 20040811, end: 20041002
  10. PREDONINE [Concomitant]
     Route: 048
     Dates: start: 20040811, end: 20040927
  11. PREDONINE [Concomitant]
     Route: 048
     Dates: start: 20040928, end: 20041002
  12. SOLDEM 3A [Concomitant]
     Route: 042
     Dates: start: 20040922, end: 20041001
  13. FUNGIZONE [Concomitant]
     Route: 055
     Dates: start: 20040924, end: 20041001
  14. KYTRIL [Concomitant]
     Route: 042
     Dates: start: 20040922, end: 20040927
  15. SOLU-CORTEF [Concomitant]
     Dates: start: 20040929, end: 20040929
  16. PHYSIO 35 [Concomitant]
     Route: 042
     Dates: start: 20041001, end: 20041005
  17. PHYSIO 35 [Concomitant]
     Route: 042
     Dates: start: 20041013, end: 20041025
  18. MODACIN [Concomitant]
     Route: 042
     Dates: start: 20041001, end: 20041003
  19. FLUCONAZOLE [Concomitant]
     Route: 042
     Dates: start: 20041001, end: 20041005
  20. MEROPEN [Concomitant]
     Route: 042
     Dates: start: 20041003, end: 20041012
  21. AMIKACIN SULFATE [Concomitant]
     Dates: start: 20041002, end: 20041010
  22. FUNGUARD [Concomitant]
     Route: 042
     Dates: start: 20041006, end: 20041013
  23. CALCIUM CARBONATE [Concomitant]
     Route: 042
     Dates: start: 20041005, end: 20041012
  24. GLOVENIN-I [Concomitant]
     Route: 042
     Dates: start: 20041002, end: 20041002
  25. GLOVENIN-I [Concomitant]
     Route: 042
     Dates: start: 20041003, end: 20041003
  26. PREDONINE [Concomitant]
     Dates: start: 20041003, end: 20041007
  27. MINERALIN [Concomitant]
     Route: 042
     Dates: start: 20041005, end: 20041012
  28. DOPAMINE HCL [Concomitant]
     Route: 042
     Dates: start: 20041002, end: 20041012
  29. DOBUTREX [Concomitant]
     Route: 042
     Dates: start: 20041002, end: 20041004
  30. ROPION [Concomitant]
     Route: 042

REACTIONS (1)
  - SHOCK [None]
